FAERS Safety Report 7970886-2 (Version None)
Quarter: 2011Q4

REPORT INFORMATION
  Report Type: 
  Country: None (occurrence: None)
  Receive Date: 20111212
  Receipt Date: 20111207
  Transmission Date: 20120403
  Serious: Yes (Death, Hospitalization)
  Sender: FDA-Public Use
  Company Number: PHHY2011MX107273

PATIENT
  Sex: Female

DRUGS (5)
  1. ZOLEDRONOC ACID [Suspect]
     Indication: OSTEOPOROSIS
     Dosage: 5 MG/ 100 ML ONCE A YEAR
     Route: 042
     Dates: start: 20090301
  2. LEXOTAN [Concomitant]
     Dosage: ONCE BY DAY
  3. ZOLEDRONOC ACID [Suspect]
     Dosage: 5 MG/ 100 ML ONCE A YEAR
     Route: 042
     Dates: start: 20110401
  4. ATACAN [Concomitant]
     Dosage: ONE EVERY 3RD DAY
  5. CELEBREX [Concomitant]
     Dosage: 3 TIMES BY DAY
     Dates: start: 20090301

REACTIONS (3)
  - DEATH [None]
  - COMA [None]
  - CONSTIPATION [None]
